FAERS Safety Report 7551672-4 (Version None)
Quarter: 2011Q2

REPORT INFORMATION
  Report Type: 
  Country: None (occurrence: None)
  Receive Date: 20110616
  Receipt Date: 20110608
  Transmission Date: 20111010
  Serious: Yes (Hospitalization)
  Sender: FDA-Public Use
  Company Number: CH-BAXTER-2011BH018979

PATIENT
  Age: 66 Year
  Sex: Female
  Weight: 54 kg

DRUGS (13)
  1. CYCLOPHOSPHAMIDE [Suspect]
     Route: 065
     Dates: start: 19990101
  2. AREDIA [Suspect]
     Indication: MULTIPLE MYELOMA
     Route: 065
     Dates: start: 20060101
  3. AREDIA [Suspect]
     Route: 065
     Dates: start: 19980101
  4. MITOXANTRONE [Suspect]
     Indication: MULTIPLE MYELOMA
     Route: 065
     Dates: start: 19990101
  5. VELCADE [Suspect]
     Indication: MULTIPLE MYELOMA
     Route: 065
     Dates: start: 20100101
  6. CYCLOPHOSPHAMIDE [Suspect]
     Indication: MULTIPLE MYELOMA
     Route: 065
     Dates: start: 20071101, end: 20080301
  7. VELCADE [Suspect]
     Route: 065
     Dates: start: 20080101, end: 20080101
  8. VELCADE [Suspect]
     Route: 065
     Dates: start: 20090101, end: 20090101
  9. MITOXANTRONE [Suspect]
     Indication: NEOPLASM MALIGNANT
     Route: 065
     Dates: start: 19990101
  10. VELCADE [Suspect]
     Route: 065
     Dates: start: 20060101
  11. LENALIDOMIDE [Suspect]
     Indication: MULTIPLE MYELOMA
     Route: 065
     Dates: start: 20060101
  12. AREDIA [Suspect]
     Route: 065
     Dates: start: 20010101
  13. LENALIDOMIDE [Suspect]
     Route: 065
     Dates: start: 20090101, end: 20090101

REACTIONS (1)
  - CARDIOMYOPATHY [None]
